FAERS Safety Report 17510075 (Version 5)
Quarter: 2020Q4

REPORT INFORMATION
  Report Type: Spontaneous
  Country: US (occurrence: US)
  Receive Date: 20200306
  Receipt Date: 20201210
  Transmission Date: 20210113
  Serious: Yes (Death)
  Sender: FDA-Public Use
  Company Number: US-PFIZER INC-2020098860

PATIENT
  Age: 62 Year
  Sex: Female

DRUGS (1)
  1. RETACRIT [Suspect]
     Active Substance: EPOETIN ALFA-EPBX
     Indication: OVARIAN CANCER
     Dosage: 40000 IU, DAILY FOR 5 DAYS

REACTIONS (3)
  - Death [Fatal]
  - Off label use [Unknown]
  - Aphonia [Unknown]
